FAERS Safety Report 5623548-0 (Version None)
Quarter: 2008Q1

REPORT INFORMATION
  Report Type: 
  Country: None (occurrence: None)
  Receive Date: 20080129
  Receipt Date: 20070315
  Transmission Date: 20080703
  Serious: Yes (Other)
  Sender: FDA-Public Use
  Company Number: WAES 0703USA03149

PATIENT
  Age: 33 Year
  Sex: Male

DRUGS (1)
  1. INVANZ [Suspect]
     Indication: ABDOMINAL INFECTION
     Dosage: 1.0 GM, IV
     Route: 042

REACTIONS (1)
  - ANAPHYLACTIC REACTION [None]
